FAERS Safety Report 5728305-2 (Version None)
Quarter: 2008Q2

REPORT INFORMATION
  Report Type: 
  Country: None (occurrence: None)
  Receive Date: 20080502
  Receipt Date: 20080502
  Transmission Date: 20081010
  Serious: Yes (Hospitalization)
  Sender: FDA-Public Use
  Company Number: None

PATIENT
  Age: 71 Year
  Sex: Male

DRUGS (2)
  1. WARFARIN SODIUM [Suspect]
     Indication: ATRIAL FIBRILLATION
     Dosage: 2.5 MG PO
     Route: 048
  2. ILOPROST [Suspect]
     Indication: PULMONARY HYPERTENSION
     Dosage: 10 MCG PO
     Route: 048

REACTIONS (5)
  - COAGULOPATHY [None]
  - COUGH [None]
  - DRUG DOSE OMISSION [None]
  - HAEMOPTYSIS [None]
  - INFECTION [None]
